FAERS Safety Report 8778024 (Version 3)
Quarter: 2012Q4

REPORT INFORMATION
  Report Type: Report from Study
  Country: DE (occurrence: DE)
  Receive Date: 20120912
  Receipt Date: 20121005
  Transmission Date: 20130627
  Serious: Yes (Hospitalization)
  Sender: FDA-Public Use
  Company Number: DE-PFIZER INC-DE-WYE-G04994909

PATIENT
  Age: 55 Year
  Sex: Female
  Weight: 75 kg

DRUGS (9)
  1. TAZOBAC EF [Suspect]
     Indication: PNEUMONIA
     Dosage: 4.5 g, 3x/Day
     Route: 042
     Dates: start: 20090925, end: 20091004
  2. DIFLUCAN [Suspect]
     Indication: PROPHYLAXIS
     Dosage: 200 mg, 1x/day
     Route: 048
     Dates: start: 20090925, end: 20091002
  3. PANTOZOL [Suspect]
     Indication: PROPHYLAXIS AGAINST GASTROINTESTINAL ULCER
     Dosage: 40 mg, 2x/day
     Route: 048
     Dates: start: 200906
  4. IFOSFAMIDE [Suspect]
     Indication: GASTRIC SARCOMA
     Dosage: single dose 3000 mg, frequency unknown
     Route: 042
     Dates: start: 20090915, end: 20090919
  5. DEXAMETHASONE [Suspect]
     Indication: GASTRIC SARCOMA
     Dosage: 8 mg, 1x/day
     Route: 042
     Dates: start: 20090915, end: 20090919
  6. CIPRALEX [Concomitant]
     Dosage: UNK
     Route: 048
     Dates: start: 20090918
  7. GRANISETRON [Concomitant]
     Dosage: UNK
     Route: 048
     Dates: start: 20090915, end: 20090919
  8. MESNA [Concomitant]
     Dosage: UNK
     Route: 042
     Dates: start: 20090915, end: 20090919
  9. METOPROLOL [Concomitant]
     Dosage: UNK
     Route: 048
     Dates: start: 2000

REACTIONS (1)
  - Clostridium difficile colitis [Recovered/Resolved]
